FAERS Safety Report 8142541-X (Version None)
Quarter: 2012Q1

REPORT INFORMATION
  Report Type: 
  Country: None (occurrence: None)
  Receive Date: 20120103
  Receipt Date: 20110824
  Transmission Date: 20120608
  Serious: No
  Sender: FDA-Public Use
  Company Number: AE-2011-001101

PATIENT
  Age: 61 Year
  Sex: Male
  Weight: 113.3993 kg

DRUGS (6)
  1. VITAMIN D [Concomitant]
  2. PEGSUS (PEGINTERFERON ALFA-2A) [Concomitant]
  3. PREVACID [Concomitant]
  4. RIBAVIRIN [Concomitant]
  5. INCIVEK [Suspect]
     Dosage: 2250 MG (750 MG, 3 IN 1 D), ORAL
     Route: 048
     Dates: start: 20110819
  6. HUMULIN INSULIN (INSULIN HUMAN INJECTION, ISOPHANE) [Concomitant]

REACTIONS (2)
  - NAUSEA [None]
  - HAEMORRHOIDS [None]
